FAERS Safety Report 8155950-X (Version None)
Quarter: 2012Q1

REPORT INFORMATION
  Report Type: 
  Country: None (occurrence: None)
  Receive Date: 20120222
  Receipt Date: 20120220
  Transmission Date: 20120608
  Serious: No
  Sender: FDA-Public Use
  Company Number: US-PFIZER INC-2012042244

PATIENT
  Sex: Male
  Weight: 72.562 kg

DRUGS (9)
  1. AMOXICILLIN [Concomitant]
     Indication: BRONCHITIS
     Dosage: UNK
  2. LYRICA [Concomitant]
     Dosage: UNK
  3. AMOXICILLIN [Concomitant]
     Indication: PNEUMONIA
  4. SOMA [Concomitant]
     Dosage: UNK
  5. CHANTIX [Suspect]
     Indication: SMOKING CESSATION THERAPY
     Dosage: 0.5 MG, DAILY
     Dates: start: 20120101, end: 20120101
  6. PERCOCET [Concomitant]
     Dosage: UNK
  7. CHANTIX [Suspect]
     Dosage: 0.5 MG, 1X/DAY
     Route: 048
     Dates: start: 20120203, end: 20120201
  8. VALIUM [Concomitant]
     Dosage: UNK
  9. CHANTIX [Suspect]
     Dosage: 1 MG, 2X/DAY
     Dates: start: 20120201

REACTIONS (4)
  - APHTHOUS STOMATITIS [None]
  - INSOMNIA [None]
  - SCAR [None]
  - DIARRHOEA [None]
